FAERS Safety Report 7967619-2 (Version None)
Quarter: 2011Q4

REPORT INFORMATION
  Report Type: 
  Country: None (occurrence: None)
  Receive Date: 20111209
  Receipt Date: 20111201
  Transmission Date: 20120403
  Serious: Yes (Other)
  Sender: FDA-Public Use
  Company Number: ES-JNJFOC-20111008180

PATIENT
  Age: 18 Year
  Sex: Female

DRUGS (1)
  1. STELARA [Suspect]
     Indication: DERMATITIS ATOPIC
     Route: 058
     Dates: start: 20111007

REACTIONS (2)
  - HEADACHE [None]
  - OFF LABEL USE [None]
